FAERS Safety Report 8558038-9 (Version None)
Quarter: 2012Q3

REPORT INFORMATION
  Report Type: 
  Country: None (occurrence: None)
  Receive Date: 20120801
  Receipt Date: 20120725
  Transmission Date: 20120928
  Serious: Yes (Hospitalization)
  Sender: FDA-Public Use
  Company Number: CA-ROCHE-GNE291537

PATIENT
  Sex: Female
  Weight: 136 kg

DRUGS (10)
  1. XOLAIR [Suspect]
     Route: 058
     Dates: start: 20071127
  2. XOLAIR [Suspect]
     Route: 058
     Dates: start: 20091020
  3. ANTIBIOTICS (NOT SPECIFIED) [Concomitant]
     Indication: PRODUCT USED FOR UNKNOWN INDICATION
     Route: 065
  4. ANTIBIOTICS (NOT SPECIFIED) [Concomitant]
     Route: 065
     Dates: start: 20120724
  5. XOLAIR [Suspect]
     Indication: ASTHMA
     Route: 058
     Dates: start: 20090922
  6. XOLAIR [Suspect]
     Route: 058
     Dates: start: 20091229
  7. PREDNISONE [Concomitant]
     Indication: PRODUCT USED FOR UNKNOWN INDICATION
     Route: 065
  8. XOLAIR [Suspect]
     Route: 065
     Dates: start: 20120725
  9. OXEZE [Concomitant]
     Indication: PRODUCT USED FOR UNKNOWN INDICATION
     Route: 065
  10. ALVESCO [Concomitant]
     Route: 065

REACTIONS (8)
  - SUPERINFECTION [None]
  - COUGH [None]
  - BRONCHITIS [None]
  - DYSPNOEA [None]
  - HYPERSENSITIVITY [None]
  - NASOPHARYNGITIS [None]
  - ASTHMA [None]
  - SINUSITIS [None]
